FAERS Safety Report 5599875-2 (Version None)
Quarter: 2008Q1

REPORT INFORMATION
  Report Type: 
  Country: None (occurrence: None)
  Receive Date: 20080117
  Receipt Date: 20080107
  Transmission Date: 20080703
  Serious: Yes (Other)
  Sender: FDA-Public Use
  Company Number: 2008AP000041

PATIENT
  Age: 28 Year

DRUGS (4)
  1. TERBINAFINE HCL [Suspect]
     Indication: ONYCHOMYCOSIS
     Dosage: 250 MG;PO
     Route: 048
     Dates: start: 20070615, end: 20071012
  2. CODEINE PHOSPHATE (CODEINE PHOSPHATE) [Concomitant]
  3. ACETAMINOPHEN [Concomitant]
  4. DICLOFENAC (DICLOFENAC) [Concomitant]

REACTIONS (2)
  - DYSTONIA [None]
  - MUSCLE SPASMS [None]
